FAERS Safety Report 5999645-7 (Version None)
Quarter: 2008Q4

REPORT INFORMATION
  Report Type: 
  Country: None (occurrence: None)
  Receive Date: 20081211
  Receipt Date: 20081211
  Transmission Date: 20090506
  Serious: Yes (Other)
  Sender: FDA-Public Use
  Company Number: None

PATIENT
  Sex: Female
  Weight: 122.4712 kg

DRUGS (1)
  1. ZYPREXA ZYDIS [Suspect]
     Indication: DEPRESSION
     Dosage: 20 MG 2 AT NIGHT
     Dates: start: 20081101, end: 20081201

REACTIONS (4)
  - DIZZINESS [None]
  - FEELING ABNORMAL [None]
  - MUCOUS MEMBRANE DISORDER [None]
  - PALPITATIONS [None]
